FAERS Safety Report 21054526 (Version 8)
Quarter: 2024Q1

REPORT INFORMATION
  Report Type: Spontaneous
  Country: US (occurrence: US)
  Receive Date: 20220707
  Receipt Date: 20240220
  Transmission Date: 20240410
  Serious: Yes (Other)
  Sender: FDA-Public Use
  Company Number: US-PFIZER INC-PV202200014667

PATIENT
  Age: 69 Year
  Sex: Female

DRUGS (2)
  1. IBRANCE [Suspect]
     Active Substance: PALBOCICLIB
     Indication: Breast cancer metastatic
     Dosage: 125 MG, EVERY 3 WEEKS
     Dates: start: 2018
  2. IBRANCE [Suspect]
     Active Substance: PALBOCICLIB
     Dosage: 125 MG 3X7 UD TAB 21

REACTIONS (19)
  - Syncope [Recovered/Resolved]
  - Gait disturbance [Unknown]
  - Pain [Unknown]
  - Dyspnoea [Unknown]
  - Dizziness [Unknown]
  - Bone pain [Recovering/Resolving]
  - Pain in extremity [Recovering/Resolving]
  - Malaise [Unknown]
  - Insomnia [Unknown]
  - Taste disorder [Unknown]
  - Parosmia [Unknown]
  - Thirst [Unknown]
  - Neoplasm progression [Unknown]
  - Asthenia [Unknown]
  - White blood cell count decreased [Unknown]
  - Decreased appetite [Unknown]
  - Fatigue [Unknown]
  - Somnolence [Unknown]
  - Cerebral disorder [Unknown]

NARRATIVE: CASE EVENT DATE: 20180101
